FAERS Safety Report 9144417 (Version 2)
Quarter: 2013Q1

REPORT INFORMATION
  Report Type: Spontaneous
  Country: US (occurrence: US)
  Receive Date: 20130306
  Receipt Date: 20130319
  Transmission Date: 20140127
  Serious: Yes (Other)
  Sender: FDA-Public Use
  Company Number: US-ROCHE-1020257

PATIENT
  Sex: Male
  Weight: 65.83 kg

DRUGS (7)
  1. ACCUTANE [Suspect]
     Indication: ACNE
     Route: 048
     Dates: start: 1990
  2. ACCUTANE [Suspect]
     Indication: CYST
     Dosage: 20-40MG
     Route: 048
     Dates: start: 19921125, end: 199304
  3. ACCUTANE [Suspect]
     Route: 048
     Dates: start: 19961108, end: 19970407
  4. LAMISIL [Concomitant]
  5. ATARAX [Concomitant]
     Route: 065
  6. MINOCIN [Concomitant]
  7. ERYTHROMYCIN [Concomitant]
     Route: 065

REACTIONS (5)
  - Colitis ulcerative [Unknown]
  - Depression [Unknown]
  - Inflammatory bowel disease [Unknown]
  - Rectal polyp [Unknown]
  - Anaemia [Unknown]
